FAERS Safety Report 6879176-2 (Version None)
Quarter: 2010Q3

REPORT INFORMATION
  Report Type: 
  Country: None (occurrence: None)
  Receive Date: 20100728
  Receipt Date: 20100719
  Transmission Date: 20110219
  Serious: Yes (Other)
  Sender: FDA-Public Use
  Company Number: TR-BAYER-201030955GPV

PATIENT
  Sex: Female

DRUGS (1)
  1. AVELOX [Suspect]
     Indication: EAR PAIN
     Dates: start: 20100315, end: 20100320

REACTIONS (4)
  - IRIS TRANSILLUMINATION DEFECT [None]
  - MYDRIASIS [None]
  - PHOTOPHOBIA [None]
  - UVEITIS [None]
